FAERS Safety Report 17609388 (Version 2)
Quarter: 2020Q2

REPORT INFORMATION
  Report Type: Report from Study
  Country: CA (occurrence: CA)
  Receive Date: 20200401
  Receipt Date: 20200416
  Transmission Date: 20200713
  Serious: Yes (Other)
  Sender: FDA-Public Use
  Company Number: NVSC2020CA086933

PATIENT
  Age: 83 Year
  Sex: Male

DRUGS (1)
  1. ERELZI [Suspect]
     Active Substance: ETANERCEPT-SZZS
     Indication: PSORIATIC ARTHROPATHY
     Dosage: 50 MG, QW
     Route: 058
     Dates: start: 20200119, end: 20200329

REACTIONS (10)
  - Diabetes mellitus [Unknown]
  - Balance disorder [Unknown]
  - Accident [Unknown]
  - Pain [Unknown]
  - Grip strength decreased [Unknown]
  - Gait disturbance [Unknown]
  - Insomnia [Unknown]
  - Burns second degree [Unknown]
  - Dysstasia [Unknown]
  - General physical health deterioration [Unknown]

NARRATIVE: CASE EVENT DATE: 202003
